FAERS Safety Report 7013311-0 (Version None)
Quarter: 2010Q3

REPORT INFORMATION
  Report Type: 
  Country: None (occurrence: None)
  Receive Date: 20100909
  Receipt Date: 20100713
  Transmission Date: 20110219
  Serious: Yes (Other)
  Sender: FDA-Public Use
  Company Number: 2010SP038959

PATIENT
  Sex: Male

DRUGS (7)
  1. SAPHRIS [Suspect]
     Indication: BIPOLAR DISORDER
     Dosage: 5 MG ; BID ; PO : 5 MG ; BID ; PO
     Route: 048
     Dates: end: 20100603
  2. SAPHRIS [Suspect]
     Indication: BIPOLAR DISORDER
     Dosage: 5 MG ; BID ; PO : 5 MG ; BID ; PO
     Route: 048
     Dates: start: 20100421
  3. GLYBURIDE [Concomitant]
  4. METFORMIN HCL [Concomitant]
  5. NOVOLOG [Concomitant]
  6. LYRICA [Concomitant]
  7. CLONIDINE [Concomitant]

REACTIONS (2)
  - EXTRAPYRAMIDAL DISORDER [None]
  - INCORRECT ROUTE OF DRUG ADMINISTRATION [None]
